FAERS Safety Report 7673640-4 (Version None)
Quarter: 2011Q3

REPORT INFORMATION
  Report Type: 
  Country: None (occurrence: None)
  Receive Date: 20110810
  Receipt Date: 20110804
  Transmission Date: 20111222
  Serious: Yes (Hospitalization)
  Sender: FDA-Public Use
  Company Number: US-GENZYME-CAMP-1001766

PATIENT
  Sex: Female
  Weight: 61.224 kg

DRUGS (49)
  1. ATIVAN [Suspect]
     Indication: ANXIETY
     Dosage: 0.5 MG, PRN
     Route: 048
     Dates: start: 20110717, end: 20110717
  2. ATIVAN [Suspect]
     Indication: HEART RATE
  3. ZOLPIDEM TARTRATE [Suspect]
     Indication: INSOMNIA
     Dosage: 10 MG, PRN
     Route: 048
     Dates: start: 20090417
  4. FERROUS SULFATE TAB [Concomitant]
     Indication: ANAEMIA
     Dosage: 325 MG, QD
     Route: 048
     Dates: start: 20000101, end: 20110716
  5. VALIUM [Concomitant]
     Indication: ANXIETY
     Dosage: 5 MG, PRN
     Route: 048
     Dates: start: 20110725
  6. METHYLPREDNISOLONE [Concomitant]
     Dosage: 1.0 G, QD
     Route: 042
     Dates: start: 20100412, end: 20110414
  7. ALEMTUZUMAB [Suspect]
     Dosage: UNK UNK, QD
     Route: 042
     Dates: start: 20100412, end: 20100414
  8. ATIVAN [Suspect]
     Indication: AGITATION
     Dosage: 1 MG, BID
     Route: 048
     Dates: start: 20110717
  9. OMEPRAZOLE [Concomitant]
     Dosage: 20 MG, QD
     Route: 048
     Dates: start: 20080801, end: 20110716
  10. TRAMADOL HCL [Concomitant]
     Indication: BACK PAIN
     Dosage: 50 MG, PRN
     Route: 048
     Dates: start: 20081201, end: 20110716
  11. SOMA [Concomitant]
     Indication: BACK PAIN
     Dosage: 350 MG, BID
     Route: 048
     Dates: start: 20101001, end: 20110716
  12. ADDERALL 5 [Concomitant]
     Dosage: 5 MG, QD
     Route: 048
     Dates: start: 20110719
  13. ZANAFLEX [Concomitant]
     Indication: BACK PAIN
     Dosage: 2 MG, TID
     Route: 048
     Dates: start: 20110226, end: 20110716
  14. ONDANSETRON [Concomitant]
     Indication: PROPHYLAXIS OF NAUSEA AND VOMITING
     Dosage: 4 MG, QD
     Route: 042
     Dates: start: 20110716, end: 20110716
  15. ALEMTUZUMAB [Suspect]
     Indication: MULTIPLE SCLEROSIS
     Dosage: UNK UNK, QD
     Route: 042
     Dates: start: 20090416, end: 20090417
  16. FIORICET [Suspect]
     Indication: MENTAL STATUS CHANGES
     Dosage: 50 MG, PRN
     Route: 048
     Dates: start: 20110714, end: 20110716
  17. TYLENOL PM [Suspect]
     Indication: MENTAL STATUS CHANGES
     Dosage: 4 TABS, Q4HR
     Route: 048
     Dates: start: 20110716, end: 20110716
  18. OMEPRAZOLE [Concomitant]
     Indication: GASTROOESOPHAGEAL REFLUX DISEASE
     Dosage: 40 MG, QD
     Route: 048
     Dates: start: 20110717, end: 20110718
  19. DONEPEZIL HCL [Concomitant]
     Indication: MEMORY IMPAIRMENT
     Dosage: 10 MG, QD
     Route: 048
     Dates: start: 20090101, end: 20110716
  20. BUTALBITAL [Concomitant]
     Dosage: 50 MG, PRN
     Route: 048
     Dates: start: 20110719
  21. TYLENOL PM [Suspect]
     Indication: INSOMNIA
     Dosage: 2 TABS, PRN
     Route: 048
     Dates: start: 20060201, end: 20110715
  22. ADDERALL 5 [Concomitant]
     Indication: PRODUCT USED FOR UNKNOWN INDICATION
     Dosage: 5 MG, QD
     Dates: start: 20110719
  23. METRONIDAZOLE [Concomitant]
     Indication: CLOSTRIDIAL INFECTION
     Dosage: 500 MG, TID
     Route: 048
     Dates: start: 20110717, end: 20110728
  24. ACETAMINOPHEN [Concomitant]
     Indication: BODY TEMPERATURE INCREASED
  25. NITROFURANTOIN [Concomitant]
     Indication: URINARY TRACT INFECTION
     Dosage: 100 MG, BID
     Route: 048
     Dates: start: 20110707, end: 20110716
  26. ENABLEX [Concomitant]
     Indication: POLLAKIURIA
     Dosage: 7.5 MG, QD
     Route: 048
     Dates: start: 20090301, end: 20110716
  27. SOMA [Concomitant]
     Dosage: 350 MG, BID
     Route: 048
     Dates: start: 20110719
  28. ATIVAN [Suspect]
     Indication: MENTAL STATUS CHANGES
     Dosage: 1 MG, PRN
     Route: 048
     Dates: start: 20110711, end: 20110716
  29. FERROUS SULFATE TAB [Concomitant]
     Dosage: 325 MG, QD
     Route: 048
     Dates: start: 20110719
  30. SACCHAROMYCES BOULARDII [Concomitant]
     Indication: CLOSTRIDIAL INFECTION
     Dosage: 250 MG, QD
     Route: 048
     Dates: start: 20110717, end: 20110718
  31. ACETAMINOPHEN [Concomitant]
     Indication: PAIN
  32. ZANAFLEX [Concomitant]
     Dosage: 2 MG, TID
     Route: 048
     Dates: start: 20110718, end: 20110720
  33. METHYLPREDNISOLONE [Concomitant]
     Dosage: 1.0 G, QD
     Route: 042
     Dates: start: 20090420, end: 20090420
  34. SODIUM CHLORIDE [Concomitant]
     Indication: DEHYDRATION
     Dosage: 100 ML, Q1HR
     Route: 042
     Dates: start: 20110716, end: 20110717
  35. SODIUM CHLORIDE [Concomitant]
     Indication: INFUSION
     Dosage: 500 ML, Q1HR
     Route: 042
     Dates: start: 20110717, end: 20110717
  36. HEPARIN [Concomitant]
     Indication: PROPHYLAXIS
     Dosage: 5000 U, PRN
     Route: 058
     Dates: start: 20110716, end: 20110717
  37. POTASSIUM CHLORIDE [Concomitant]
     Indication: HYPOKALAEMIA
     Dosage: 40 MG, TID
     Route: 048
     Dates: start: 20110717, end: 20110717
  38. TRAMADOL HCL [Concomitant]
     Dosage: 50 MG, BID
     Route: 048
     Dates: start: 20110719, end: 20110726
  39. ENABLEX [Concomitant]
     Dosage: 7.5 MG, QD
     Route: 048
     Dates: start: 20110719
  40. METHYLPREDNISOLONE [Concomitant]
     Indication: MULTIPLE SCLEROSIS
     Dosage: 1.0 G, QD
     Route: 042
     Dates: start: 20090416, end: 20090417
  41. PAROXETINE HCL [Concomitant]
     Indication: PRODUCT USED FOR UNKNOWN INDICATION
     Dosage: 30 MG, QD
     Route: 048
     Dates: start: 20110717, end: 20110718
  42. BUTALBITAL [Concomitant]
     Indication: MIGRAINE
     Dosage: 50 MG, PRN
     Route: 048
     Dates: start: 20000101, end: 20110714
  43. ALEMTUZUMAB [Suspect]
     Dosage: UNK
     Route: 042
     Dates: start: 20090420, end: 20090422
  44. OMEPRAZOLE [Concomitant]
     Dosage: 20 MG, QD
     Route: 048
     Dates: start: 20110719
  45. DONEPEZIL HCL [Concomitant]
     Dosage: 10 MG, QD
     Route: 048
     Dates: start: 20110719
  46. ACETAMINOPHEN [Concomitant]
     Indication: HEADACHE
     Dosage: 650 MG, PRN
     Route: 048
     Dates: start: 20110717, end: 20110717
  47. GUANFACINE HYDROCHLORIDE [Concomitant]
     Indication: ATTENTION DEFICIT/HYPERACTIVITY DISORDER
     Dosage: 1 MG, TID
     Route: 048
     Dates: start: 20090201, end: 20110716
  48. GUANFACINE HYDROCHLORIDE [Concomitant]
     Dosage: 1.5 MG, QD
     Route: 048
     Dates: start: 20110718, end: 20110729
  49. ADDERALL 5 [Concomitant]
     Indication: ATTENTION DEFICIT/HYPERACTIVITY DISORDER
     Dosage: 5 MG, QD
     Route: 048
     Dates: start: 20110127, end: 20110716

REACTIONS (1)
  - MENTAL STATUS CHANGES [None]
